FAERS Safety Report 10671545 (Version 4)
Quarter: 2015Q2

REPORT INFORMATION
  Report Type: Report from Study
  Country: US (occurrence: US)
  Receive Date: 20141223
  Receipt Date: 20150505
  Transmission Date: 20150821
  Serious: Yes (Hospitalization)
  Sender: FDA-Public Use
  Company Number: US-ACTELION-A-US2014-109964

PATIENT
  Age: 75 Year
  Sex: Female

DRUGS (3)
  1. MACITENTAN [Suspect]
     Active Substance: MACITENTAN
     Indication: PULMONARY ARTERIAL HYPERTENSION
     Dosage: 10 MG, QD
     Route: 048
     Dates: start: 20140122
  2. RIOCIGUAT [Suspect]
     Active Substance: RIOCIGUAT
     Dosage: 2.5 MG,
     Route: 065
  3. RIOCIGUAT [Suspect]
     Active Substance: RIOCIGUAT
     Indication: PULMONARY ARTERIAL HYPERTENSION
     Dosage: 2 MG,
     Route: 065

REACTIONS (7)
  - Palpitations [Unknown]
  - Localised infection [Unknown]
  - Oxygen saturation decreased [Unknown]
  - Heart rate increased [Unknown]
  - Oxygen consumption increased [Unknown]
  - Dyspnoea [Unknown]
  - Dyspnoea exertional [Unknown]
